FAERS Safety Report 9203291 (Version 2)
Quarter: 2013Q2

REPORT INFORMATION
  Report Type: Spontaneous
  Country: BR (occurrence: None)
  Receive Date: 20130329
  Receipt Date: 20130405
  Transmission Date: 20140414
  Serious: Yes (Other)
  Sender: FDA-Public Use
  Company Number: ENT 2013-0062

PATIENT
  Sex: Female

DRUGS (2)
  1. COMTAN (ENTACAPONE) [Suspect]
     Indication: PARKINSON^S DISEASE
     Route: 048
  2. PROLOPA [Suspect]
     Indication: PARKINSON^S DISEASE
     Route: 048

REACTIONS (5)
  - Drug ineffective [None]
  - Parkinson^s disease [None]
  - Disease progression [None]
  - Renal failure [None]
  - No therapeutic response [None]
